FAERS Safety Report 17161405 (Version 1)
Quarter: 2019Q4

REPORT INFORMATION
  Report Type: Report from Study
  Country: DE (occurrence: DE)
  Receive Date: 20191216
  Receipt Date: 20191216
  Transmission Date: 20200122
  Serious: Yes (Other)
  Sender: FDA-Public Use
  Company Number: DE-BIOGEN-2019BI00816991

PATIENT
  Sex: Female

DRUGS (1)
  1. TECFIDERA [Suspect]
     Active Substance: DIMETHYL FUMARATE
     Indication: PRODUCT USED FOR UNKNOWN INDICATION
     Route: 048
     Dates: start: 20170102, end: 20190826

REACTIONS (3)
  - Uhthoff^s phenomenon [Recovered/Resolved]
  - Stress [Recovered/Resolved]
  - Abscess jaw [Recovered/Resolved]

NARRATIVE: CASE EVENT DATE: 2019
